FAERS Safety Report 5200871-5 (Version None)
Quarter: 2007Q1

REPORT INFORMATION
  Report Type: 
  Country: None (occurrence: None)
  Receive Date: 20070108
  Receipt Date: 20061226
  Transmission Date: 20070707
  Serious: Yes (Hospitalization, Other)
  Sender: FDA-Public Use
  Company Number: PHBS2006BR16861

PATIENT
  Age: 54 Year
  Sex: Female
  Weight: 67 kg

DRUGS (6)
  1. VOLTAREN [Suspect]
     Indication: EXOSTOSIS
     Dosage: UNK, UNK
     Route: 042
  2. CAPTOPRIL [Concomitant]
     Indication: HYPERTENSION
     Dosage: 20 MG/DAY
     Route: 048
  3. GLYBURIDE [Concomitant]
     Indication: DIABETES MELLITUS NON-INSULIN-DEPENDENT
     Dosage: 10 MG/DAY
     Route: 048
  4. SALICIN [Concomitant]
     Indication: HYPERTENSION
     Dosage: 10 MG/DAY
  5. GLIMEPIRIDE [Concomitant]
     Indication: DIABETES MELLITUS
     Dosage: 5 MG, QD
     Route: 048
  6. DIAZEPAM [Concomitant]
     Dosage: 10 MG, QD

REACTIONS (17)
  - ANOREXIA [None]
  - APPLICATION SITE SWELLING [None]
  - CEREBROVASCULAR ACCIDENT [None]
  - DIZZINESS [None]
  - DYSPNOEA [None]
  - GRIP STRENGTH DECREASED [None]
  - HYPOAESTHESIA [None]
  - INCORRECT DOSE ADMINISTERED [None]
  - INCORRECT ROUTE OF DRUG ADMINISTRATION [None]
  - INJECTION SITE ERYTHEMA [None]
  - INJECTION SITE PHLEBITIS [None]
  - IRRITABILITY [None]
  - MEMORY IMPAIRMENT [None]
  - MONOPLEGIA [None]
  - NERVOUSNESS [None]
  - VISUAL DISTURBANCE [None]
  - VOMITING [None]
